FAERS Safety Report 19673351 (Version 1)
Quarter: 2021Q3

REPORT INFORMATION
  Report Type: Report from Study
  Country: JP (occurrence: JP)
  Receive Date: 20210809
  Receipt Date: 20210809
  Transmission Date: 20211014
  Serious: Yes (Other)
  Sender: FDA-Public Use
  Company Number: JP-AUROBINDO-AUR-APL-2021-034257

PATIENT
  Age: 73 Year
  Sex: Male

DRUGS (1)
  1. FOLOTYN [Suspect]
     Active Substance: PRALATREXATE
     Indication: ADULT T-CELL LYMPHOMA/LEUKAEMIA
     Dosage: 30 MILLIGRAM/SQ. METER
     Route: 042
     Dates: start: 20201202, end: 20201209

REACTIONS (3)
  - Stomatitis [Not Recovered/Not Resolved]
  - Febrile neutropenia [Not Recovered/Not Resolved]
  - Therapeutic response decreased [Unknown]

NARRATIVE: CASE EVENT DATE: 20201210
